FAERS Safety Report 21447342 (Version 5)
Quarter: 2022Q4

REPORT INFORMATION
  Report Type: Spontaneous
  Country: CA (occurrence: None)
  Receive Date: 20221012
  Receipt Date: 20221109
  Transmission Date: 20230113
  Serious: Yes (Life-Threatening, Other)
  Sender: FDA-Public Use
  Company Number: 2022A342945

PATIENT
  Age: 72 Year
  Sex: Female

DRUGS (1)
  1. SYMBICORT [Suspect]
     Active Substance: BUDESONIDE\FORMOTEROL FUMARATE DIHYDRATE
     Route: 055

REACTIONS (15)
  - Dystonia [Unknown]
  - Cerebral disorder [Unknown]
  - Suicidal ideation [Unknown]
  - Dysphonia [Unknown]
  - Depression [Unknown]
  - Behaviour disorder [Unknown]
  - Blood glucose increased [Unknown]
  - Bronchospasm [Unknown]
  - Throat irritation [Unknown]
  - Agitation [Unknown]
  - Muscle spasms [Unknown]
  - Rash [Unknown]
  - Cough [Unknown]
  - Stomatitis [Unknown]
  - Drug ineffective [Unknown]
